FAERS Safety Report 5254631-X (Version None)
Quarter: 2007Q1

REPORT INFORMATION
  Report Type: 
  Country: None (occurrence: None)
  Receive Date: 20070302
  Receipt Date: 20070219
  Transmission Date: 20070707
  Serious: Yes (Other)
  Sender: FDA-Public Use
  Company Number: NL-PFIZER INC-2007014563

PATIENT
  Age: 76 Year
  Sex: Male
  Weight: 80 kg

DRUGS (5)
  1. REVATIO [Suspect]
     Indication: PULMONARY HYPERTENSION
     Route: 048
  2. ACENOCOUMAROL [Concomitant]
     Route: 048
  3. FLUIMICIL [Concomitant]
  4. BUMETANIDE [Concomitant]
     Route: 048
  5. SPIRIVA [Concomitant]

REACTIONS (2)
  - HAEMATURIA [None]
  - POLYP [None]
